FAERS Safety Report 16467261 (Version 2)
Quarter: 2019Q3

REPORT INFORMATION
  Report Type: Spontaneous
  Country: US (occurrence: US)
  Receive Date: 20190624
  Receipt Date: 20190730
  Transmission Date: 20191004
  Serious: No
  Sender: FDA-Public Use
  Company Number: US-ELI_LILLY_AND_COMPANY-US201906011081

PATIENT
  Sex: Female
  Weight: 90.71 kg

DRUGS (1)
  1. HUMULIN R [Suspect]
     Active Substance: INSULIN HUMAN
     Indication: GESTATIONAL DIABETES
     Dosage: 2 U, DAILY
     Route: 058
     Dates: start: 20190503

REACTIONS (2)
  - Maternal exposure during pregnancy [Recovered/Resolved]
  - Hypersensitivity [Recovered/Resolved]
